FAERS Safety Report 9833273 (Version 2)
Quarter: 2014Q1

REPORT INFORMATION
  Report Type: Report from Study
  Country: DE (occurrence: DE)
  Receive Date: 20140121
  Receipt Date: 20140121
  Transmission Date: 20141002
  Serious: Yes (Other)
  Sender: FDA-Public Use
  Company Number: DE-ABBVIE-14P-062-1192049-00

PATIENT
  Age: 73 Year
  Sex: Male

DRUGS (4)
  1. LUPRON DEPOT [Suspect]
     Indication: PROSTATE CANCER
     Route: 058
     Dates: start: 20120622, end: 20130912
  2. UNSPECIFIED CALCIUM ANTAGONIST (UNSPECIFIED CALCIUM ANTAGONIST) [Concomitant]
     Indication: PRODUCT USED FOR UNKNOWN INDICATION
  3. UNSPECIFIED DIURETIC (UNSPECIFIED DIURETIC) [Concomitant]
     Indication: PRODUCT USED FOR UNKNOWN INDICATION
  4. UNSPECIFIED BETA BLOCKER (UNSPECIFIED BETA BLOCKER) [Concomitant]
     Indication: PRODUCT USED FOR UNKNOWN INDICATION

REACTIONS (2)
  - Metastases to bone [Unknown]
  - Blood alkaline phosphatase increased [Unknown]
